FAERS Safety Report 18201918 (Version 1)
Quarter: 2020Q3

REPORT INFORMATION
  Report Type: Spontaneous
  Country: US (occurrence: US)
  Receive Date: 20200827
  Receipt Date: 20200827
  Transmission Date: 20201103
  Serious: Yes (Other)
  Sender: FDA-Public Use
  Company Number: US-PFIZER INC-2020331662

PATIENT
  Age: 84 Year
  Sex: Female

DRUGS (1)
  1. NORVASC [Suspect]
     Active Substance: AMLODIPINE BESYLATE
     Dosage: 10 MG, 1X/DAY (10MG TABLETS, ONE A DAY BEFORE BED)

REACTIONS (7)
  - Blindness [Unknown]
  - Product packaging counterfeit [Unknown]
  - Nervous system disorder [Unknown]
  - Malaise [Unknown]
  - Bradyphrenia [Unknown]
  - Circumstance or information capable of leading to medication error [Unknown]
  - Poor quality product administered [Unknown]
